FAERS Safety Report 17737483 (Version 1)
Quarter: 2020Q2

REPORT INFORMATION
  Report Type: Spontaneous
  Country: ES (occurrence: ES)
  Receive Date: 20200504
  Receipt Date: 20200504
  Transmission Date: 20200714
  Serious: Yes (Other)
  Sender: FDA-Public Use
  Company Number: ES-AUROBINDO-AUR-APL-2020-021475

PATIENT
  Age: 50 Year
  Sex: Male
  Weight: 105 kg

DRUGS (3)
  1. MORPHINE [Concomitant]
     Active Substance: MORPHINE
     Indication: PAIN
     Dosage: 2 AL DIA CADA DOS MESES
     Route: 065
     Dates: start: 20200206
  2. PARACETAMOL 1G [Suspect]
     Active Substance: ACETAMINOPHEN
     Indication: PYREXIA
     Dosage: 1 GRAM
     Route: 048
     Dates: start: 20200302
  3. TRANKIMAZIN [Concomitant]
     Active Substance: ALPRAZOLAM
     Indication: DRUG DETOXIFICATION
     Dosage: UNK
     Route: 065

REACTIONS (2)
  - Migraine [Not Recovered/Not Resolved]
  - Visual impairment [Not Recovered/Not Resolved]

NARRATIVE: CASE EVENT DATE: 20200401
